FAERS Safety Report 9603087 (Version 1)
Quarter: 2013Q4

REPORT INFORMATION
  Report Type: Spontaneous
  Country: US (occurrence: US)
  Receive Date: 20131007
  Receipt Date: 20131007
  Transmission Date: 20140711
  Serious: No
  Sender: FDA-Public Use
  Company Number: US-BAYER-2013-120352

PATIENT
  Age: 67 Year
  Sex: Female

DRUGS (1)
  1. ULTRAVIST INJECTION [Suspect]

REACTIONS (4)
  - Eye swelling [None]
  - Ocular hyperaemia [None]
  - Rash [None]
  - Eye pruritus [None]
